FAERS Safety Report 18119274 (Version 1)
Quarter: 2020Q3

REPORT INFORMATION
  Report Type: Spontaneous
  Country: US (occurrence: US)
  Receive Date: 20200806
  Receipt Date: 20200806
  Transmission Date: 20201103
  Serious: Yes (Hospitalization)
  Sender: FDA-Public Use
  Company Number: None

PATIENT
  Sex: Female

DRUGS (4)
  1. CITRACAL, ASPIRIN LOW DOSE, MYRBETRIQ, PREGABALIN, ZYRTEC, BACLOFEN [Concomitant]
  2. GLATIRAMER [Suspect]
     Active Substance: GLATIRAMER
     Indication: MULTIPLE SCLEROSIS
     Dosage: ?          OTHER FREQUENCY:3 TIMES PER WEEK;?
     Route: 058
     Dates: start: 20180925
  3. CHOLESTYRAMINE, ARMOUR THYROID, MIRALAX, STOOL SOFTENER, PROBIOTIC [Concomitant]
  4. LINZESS, MODAFINIL, PENTOXIFYLLINE, YUVAFEM [Concomitant]

REACTIONS (5)
  - Pneumonia [None]
  - Pain in extremity [None]
  - Therapy interrupted [None]
  - Balance disorder [None]
  - Neuralgia [None]
